FAERS Safety Report 17334873 (Version 2)
Quarter: 2020Q1

REPORT INFORMATION
  Report Type: Report from Study
  Country: UG (occurrence: UG)
  Receive Date: 20200128
  Receipt Date: 20200306
  Transmission Date: 20200409
  Serious: Yes (Death, Other)
  Sender: FDA-Public Use
  Company Number: UG-VIIV HEALTHCARE LIMITED-UG2020GSK012843

PATIENT
  Age: 14 Month
  Sex: Male
  Weight: 3.2 kg

DRUGS (9)
  1. DOLUTEGRAVIR [Suspect]
     Active Substance: DOLUTEGRAVIR
     Indication: HIV INFECTION
     Dosage: UNK
     Route: 064
     Dates: start: 20180709
  2. PARACETAMOL [Concomitant]
     Active Substance: ACETAMINOPHEN
     Dosage: 375 MG, QD
     Dates: start: 20190515, end: 20190519
  3. COTRIMOXAZOLE [Concomitant]
     Active Substance: SULFAMETHOXAZOLE\TRIMETHOPRIM
     Indication: PROPHYLAXIS
     Dosage: 120 MG, QD
     Dates: start: 20181008, end: 20190514
  4. PARACETAMOL [Concomitant]
     Active Substance: ACETAMINOPHEN
     Dosage: 330 MG, QD
     Dates: start: 20190226, end: 201903
  5. CEPHALEXIN. [Concomitant]
     Active Substance: CEPHALEXIN
     Dosage: 375 MG, QD
     Dates: start: 20190515, end: 20190521
  6. SALINE NASAL DROPS [Concomitant]
     Indication: COUGH
     Dosage: UNK
     Dates: start: 20190226, end: 201903
  7. NEVIRAPINE SYRUP [Concomitant]
     Dosage: 1.5 ML, QD
     Dates: start: 20180826, end: 201811
  8. COTRIMOXAZOLE [Concomitant]
     Active Substance: SULFAMETHOXAZOLE\TRIMETHOPRIM
     Dosage: 240 MG, QD
     Dates: start: 20190515
  9. BROZEDEX [Concomitant]
     Indication: COUGH
     Dosage: 7.5 ML, QD
     Dates: start: 20190813

REACTIONS (1)
  - Death [Fatal]

NARRATIVE: CASE EVENT DATE: 201911
